FAERS Safety Report 8919988 (Version 1)
Quarter: 2012Q4

REPORT INFORMATION
  Report Type: 
  Country: IT (occurrence: IT)
  Receive Date: 20121121
  Receipt Date: 20121121
  Transmission Date: 20130627
  Serious: Yes (Other)
  Sender: FDA-Public Use
  Company Number: IT-MYLANLABS-2012S1023409

PATIENT
  Age: 62 Year
  Sex: Female

DRUGS (2)
  1. ALENDRONATE [Suspect]
     Indication: OSTEOPOROSIS
     Route: 048
     Dates: start: 20100121
  2. BONVIVA [Suspect]
     Indication: OSTEOPOROSIS

REACTIONS (2)
  - Abdominal pain upper [Recovered/Resolved]
  - Spinal fracture [Unknown]
